FAERS Safety Report 8103413-X (Version None)
Quarter: 2012Q1

REPORT INFORMATION
  Report Type: 
  Country: None (occurrence: None)
  Receive Date: 20120127
  Receipt Date: 20120120
  Transmission Date: 20120608
  Serious: Yes (Hospitalization)
  Sender: FDA-Public Use
  Company Number: 128704

PATIENT
  Age: 60 Year
  Sex: Male

DRUGS (1)
  1. LEUCOVORIN CALCIUM [Suspect]
     Indication: GASTROINTESTINAL CANCER METASTATIC
     Dosage: 676MG IV
     Route: 042
     Dates: start: 20110831

REACTIONS (8)
  - NEOPLASM PROGRESSION [None]
  - GASTROINTESTINAL ULCER [None]
  - CHOLANGITIS [None]
  - GASTROINTESTINAL HAEMORRHAGE [None]
  - FEBRILE NEUTROPENIA [None]
  - LETHARGY [None]
  - GASTROINTESTINAL CARCINOMA [None]
  - HAEMOLYTIC ANAEMIA [None]
